FAERS Safety Report 6173717-9 (Version None)
Quarter: 2009Q2

REPORT INFORMATION
  Report Type: 
  Country: None (occurrence: None)
  Receive Date: 20090430
  Receipt Date: 20090421
  Transmission Date: 20091009
  Serious: Yes (Other)
  Sender: FDA-Public Use
  Company Number: PHHY2009ES14074

PATIENT
  Age: 54 Year
  Sex: Male

DRUGS (14)
  1. CYCLOSPORINE [Suspect]
     Indication: STEM CELL TRANSPLANT
     Dosage: 0.5 MG, BID FROM DAY -7 TO -3
     Route: 042
  2. CYCLOSPORINE [Interacting]
     Dosage: 1.5 MG, BID FROM DAY-2
     Route: 042
  3. SIMVASTATIN [Interacting]
  4. RISPERIDONE [Interacting]
     Dosage: 1 MG, QD
  5. VORICONAZOLE [Interacting]
     Dosage: 200 MG, BID
     Route: 048
  6. METHOTREXATE [Concomitant]
     Dosage: 15 MG/M2 ON DAY+1
     Route: 042
  7. METHOTREXATE [Concomitant]
     Dosage: 10 MG/M2 ON DAYS+3 AND +6 POST HPCT
     Route: 042
  8. FLUDARABINE PHOSPHATE [Concomitant]
     Indication: BONE MARROW CONDITIONING REGIMEN
     Dosage: 30 MG/M2, QD ON DAYS -9 AND -5
     Route: 042
  9. BUSULPHAN [Concomitant]
     Dosage: 1 MG/KG, Q6H ON DAYS -6 TO -4
     Route: 048
  10. ACYCLOVIR [Concomitant]
     Indication: INFECTION PROPHYLAXIS
     Dosage: 250 MG, BID
     Route: 042
  11. PENTAMIDINE ISETHIONATE [Concomitant]
     Dosage: 300 MG/4 WEEKS
  12. IMMUNOGLOBULINS [Concomitant]
     Dosage: 100 MG/KG EVERY 28 DAYS
     Route: 042
  13. ENALAPRIL [Concomitant]
  14. ATENOLOL [Concomitant]

REACTIONS (14)
  - BLOOD CREATINE PHOSPHOKINASE INCREASED [None]
  - BLOOD CREATININE INCREASED [None]
  - BLOOD UREA INCREASED [None]
  - CONFUSIONAL STATE [None]
  - DRUG INTERACTION [None]
  - HALLUCINATION, AUDITORY [None]
  - HALLUCINATION, VISUAL [None]
  - MOVEMENT DISORDER [None]
  - MUSCULAR WEAKNESS [None]
  - MYALGIA [None]
  - PYREXIA [None]
  - RENAL FAILURE ACUTE [None]
  - RHABDOMYOLYSIS [None]
  - STOMATITIS [None]
